FAERS Safety Report 9547274 (Version 1)
Quarter: 2013Q3

REPORT INFORMATION
  Report Type: Spontaneous
  Country: US (occurrence: US)
  Receive Date: 20130924
  Receipt Date: 20130924
  Transmission Date: 20140515
  Serious: No
  Sender: FDA-Public Use
  Company Number: US-B.I. PHARMACEUTICALS,INC./RIDGEFIELD-2013-BI-25716BP

PATIENT
  Age: 80 Year
  Sex: Female

DRUGS (4)
  1. DULCOLAX STOOL SOFTENER [Suspect]
     Indication: FAECES HARD
     Dosage: 200 MG
     Route: 048
     Dates: start: 201203
  2. BENICAR [Concomitant]
     Indication: HYPERTENSION
     Dosage: 40 MG
     Route: 048
     Dates: start: 201201
  3. CHLORTHALIDONE [Concomitant]
     Indication: HYPERTENSION
     Dosage: 12.5 MG
     Route: 048
     Dates: start: 201201
  4. DILTIAZEM [Concomitant]
     Indication: HYPERTENSION
     Dosage: 120 MG
     Route: 048
     Dates: start: 201201

REACTIONS (2)
  - Cataract [Recovered/Resolved]
  - Blood sodium decreased [Recovered/Resolved]
